FAERS Safety Report 7273527-5 (Version None)
Quarter: 2011Q1

REPORT INFORMATION
  Report Type: 
  Country: None (occurrence: None)
  Receive Date: 20110203
  Receipt Date: 20110120
  Transmission Date: 20110831
  Serious: Yes (Congenital Anomaly)
  Sender: FDA-Public Use
  Company Number: GB-ENDO PHARMACEUTICALS INC.-FRVA20110006

PATIENT
  Sex: Female

DRUGS (1)
  1. FROVA [Suspect]
     Indication: DRUG EXPOSURE DURING PREGNANCY
     Dosage: 2.5 MG
     Route: 064

REACTIONS (3)
  - LIMB MALFORMATION [None]
  - HAEMANGIOMA CONGENITAL [None]
  - DRUG EXPOSURE DURING PREGNANCY [None]
